FAERS Safety Report 16855907 (Version 1)
Quarter: 2019Q3

REPORT INFORMATION
  Report Type: Spontaneous
  Country: US (occurrence: US)
  Receive Date: 20190805
  Receipt Date: 20190805
  Transmission Date: 20191005
  Serious: No
  Sender: FDA-Public Use
  Company Number: None

PATIENT
  Sex: Male

DRUGS (2)
  1. CAPECITABINE 500MG [Suspect]
     Active Substance: CAPECITABINE
     Indication: CARCINOID TUMOUR
     Dosage: ?          OTHER FREQUENCY:BID ON DAY 1-14;?
     Route: 048
     Dates: start: 20190221
  2. TEMOZOLOMIDE 140MG ACCORD HEALTHCARE [Suspect]
     Active Substance: TEMOZOLOMIDE
     Indication: CARCINOID TUMOUR
     Dosage: ?          OTHER FREQUENCY:DAILY DAY 10-14;?
     Route: 048
     Dates: start: 20190221

REACTIONS (1)
  - Gastrooesophageal reflux disease [None]
